FAERS Safety Report 5092189-9 (Version None)
Quarter: 2006Q3

REPORT INFORMATION
  Report Type: 
  Country: None (occurrence: None)
  Receive Date: 20060824
  Receipt Date: 20060816
  Transmission Date: 20061208
  Serious: Yes (Death)
  Sender: FDA-Public Use
  Company Number: 224860

PATIENT
  Age: 66 Year
  Sex: Female

DRUGS (13)
  1. AVASTIN [Suspect]
     Indication: BREAST CANCER METASTATIC
     Dosage: 300 MG
     Dates: start: 20050801, end: 20051114
  2. HERCEPTIN [Suspect]
     Indication: BREAST CANCER METASTATIC
     Dosage: 24MG
     Dates: start: 20050801, end: 20050829
  3. PROTONIX [Concomitant]
  4. MORPHINE [Concomitant]
  5. KAYEXALATE [Concomitant]
  6. INSULIN [Concomitant]
  7. SYNTHROID [Concomitant]
  8. MAXZIDE [Concomitant]
  9. LASIX [Concomitant]
  10. DIGOXIN [Concomitant]
  11. POTASSIUM CHLORIDE [Concomitant]
  12. FERROUS SULFATE TAB [Concomitant]
  13. QUININE SULFATE [Concomitant]

REACTIONS (13)
  - ASCITES [None]
  - CARBON DIOXIDE DECREASED [None]
  - DEPRESSED LEVEL OF CONSCIOUSNESS [None]
  - GASTRITIS [None]
  - HEPATIC FAILURE [None]
  - HYPERKALAEMIA [None]
  - HYPONATRAEMIA [None]
  - RENAL FAILURE [None]
  - RESPIRATORY ARREST [None]
  - SYNCOPE [None]
  - TACHYCARDIA [None]
  - UPPER GASTROINTESTINAL HAEMORRHAGE [None]
  - WHITE BLOOD CELL COUNT INCREASED [None]
